FAERS Safety Report 8225927-4 (Version None)
Quarter: 2012Q1

REPORT INFORMATION
  Report Type: 
  Country: None (occurrence: None)
  Receive Date: 20120321
  Receipt Date: 20120315
  Transmission Date: 20120608
  Serious: Yes (Hospitalization)
  Sender: FDA-Public Use
  Company Number: IT-ROCHE-1049291

PATIENT
  Sex: Female

DRUGS (4)
  1. CLONAZEPAM [Suspect]
     Indication: INTENTIONAL SELF-INJURY
     Route: 048
     Dates: start: 20120128, end: 20120128
  2. VENLAFAXINE [Suspect]
     Indication: INTENTIONAL SELF-INJURY
     Dates: start: 20120128, end: 20120128
  3. GABAPENTIN [Suspect]
     Indication: INTENTIONAL SELF-INJURY
     Route: 048
     Dates: start: 20120128, end: 20120128
  4. VALIUM [Suspect]
     Indication: INTENTIONAL SELF-INJURY
     Route: 048
     Dates: start: 20120128, end: 20120128

REACTIONS (3)
  - SOPOR [None]
  - TACHYCARDIA [None]
  - PSYCHOMOTOR HYPERACTIVITY [None]
